FAERS Safety Report 5127438-1 (Version None)
Quarter: 2006Q4

REPORT INFORMATION
  Report Type: 
  Country: None (occurrence: None)
  Receive Date: 20061010
  Receipt Date: 20060925
  Transmission Date: 20070319
  Serious: Yes (Other)
  Sender: FDA-Public Use
  Company Number: 2006115924

PATIENT
  Age: 89 Year
  Sex: Male

DRUGS (2)
  1. ZYVOX [Suspect]
     Indication: SPONDYLITIS
     Dosage: 1200 MG, INTRAVENOUS
     Route: 042
     Dates: start: 20060510
  2. HALCION [Suspect]
     Indication: INSOMNIA
     Dosage: 0.25 MG, ORAL
     Route: 048

REACTIONS (5)
  - BONE MARROW FAILURE [None]
  - CARDIAC FUNCTION TEST ABNORMAL [None]
  - CARDIOMEGALY [None]
  - DISEASE PROGRESSION [None]
  - HYPONATRAEMIA [None]
